FAERS Safety Report 20503874 (Version 1)
Quarter: 2022Q1

REPORT INFORMATION
  Report Type: Report from Study
  Country: NL (occurrence: NL)
  Receive Date: 20220222
  Receipt Date: 20220222
  Transmission Date: 20220423
  Serious: Yes (Hospitalization)
  Sender: FDA-Public Use
  Company Number: NL-UCBSA-2022008302

PATIENT
  Age: 41 Year
  Sex: Female
  Weight: 96 kg

DRUGS (5)
  1. CERTOLIZUMAB PEGOL [Suspect]
     Active Substance: CERTOLIZUMAB PEGOL
     Dosage: 200 MILLIGRAM, EV 2 WEEKS(QOW)
     Route: 058
     Dates: start: 20200409
  2. ASPIRIN CALCIUM [Concomitant]
     Active Substance: ASPIRIN CALCIUM
     Indication: Prophylaxis
     Dosage: 80 MILLIGRAM, ONCE DAILY (QD)
     Route: 048
     Dates: start: 20211224
  3. MOMETASONE [Concomitant]
     Active Substance: MOMETASONE
     Indication: Psoriasis
     Dosage: 1MG/G PER DAY
     Route: 003
     Dates: start: 20200409
  4. ACETAMINOPHEN [Concomitant]
     Active Substance: ACETAMINOPHEN
     Indication: Psoriatic arthropathy
     Dosage: 500 MILLIGRAM, AS NEEDED (PRN)
     Route: 048
     Dates: start: 20200409
  5. VITAMINS NOS [Concomitant]
     Active Substance: VITAMINS
     Indication: Vitamin supplementation
     Dosage: ONCE DAILY
     Route: 048

REACTIONS (3)
  - Premature rupture of membranes [Not Recovered/Not Resolved]
  - Maternal exposure before pregnancy [Unknown]
  - Maternal exposure during pregnancy [Unknown]

NARRATIVE: CASE EVENT DATE: 20210101
